FAERS Safety Report 16229510 (Version 2)
Quarter: 2019Q3

REPORT INFORMATION
  Report Type: Report from Study
  Country: GB (occurrence: GB)
  Receive Date: 20190423
  Receipt Date: 20190709
  Transmission Date: 20191004
  Serious: Yes (Other)
  Sender: FDA-Public Use
  Company Number: PHHY2019GB093525

PATIENT
  Sex: Female

DRUGS (1)
  1. HYRIMOZ [Suspect]
     Active Substance: ADALIMUMAB-ADAZ
     Indication: CROHN^S DISEASE
     Dosage: 160 MG, WEEK 0 LOADING DOSE
     Route: 058
     Dates: start: 20190404

REACTIONS (3)
  - Vertigo [Recovering/Resolving]
  - Localised infection [Unknown]
  - Breast mass [Unknown]
